FAERS Safety Report 6314881-8 (Version None)
Quarter: 2009Q3

REPORT INFORMATION
  Report Type: 
  Country: None (occurrence: None)
  Receive Date: 20090819
  Receipt Date: 20090812
  Transmission Date: 20100115
  Serious: Yes (Death, Hospitalization, Other)
  Sender: FDA-Public Use
  Company Number: DE-ROXANE LABORATORIES, INC.-2009-RO-00814RO

PATIENT
  Age: 69 Year

DRUGS (11)
  1. AZATHIOPRINE [Suspect]
     Indication: DEMYELINATING POLYNEUROPATHY
  2. MYCOPHENOLATE MOFETIL [Suspect]
     Indication: DEMYELINATING POLYNEUROPATHY
  3. PREDNISOLONE [Suspect]
     Indication: DEMYELINATING POLYNEUROPATHY
  4. CEFTRIAXON [Suspect]
     Indication: MENINGITIS
  5. AMPICILLIN [Suspect]
     Indication: MENINGITIS
  6. ANTIBIOTICS [Concomitant]
     Route: 042
  7. ANTIVIRAL [Concomitant]
     Route: 042
  8. ANTIFUNGAL [Concomitant]
     Route: 042
  9. IMMUNE GLOBULIN INTRAVENOUS (HUMAN) [Concomitant]
     Route: 042
  10. CORTICOSTEROIDS [Concomitant]
     Route: 048
  11. PLASMA [Concomitant]

REACTIONS (11)
  - CANDIDIASIS [None]
  - CENTRAL NERVOUS SYSTEM LESION [None]
  - COGNITIVE DISORDER [None]
  - DEATH [None]
  - DIFFUSE LARGE B-CELL LYMPHOMA [None]
  - DRUG INEFFECTIVE [None]
  - ENCEPHALITIS BRAIN STEM [None]
  - EPSTEIN-BARR VIRAEMIA [None]
  - GASTROINTESTINAL DISORDER [None]
  - HYPOXIA [None]
  - MENINGITIS [None]
